FAERS Safety Report 4357596-8 (Version None)
Quarter: 2004Q2

REPORT INFORMATION
  Report Type: 
  Country: None (occurrence: None)
  Receive Date: 20040510
  Receipt Date: 20040504
  Transmission Date: 20050107
  Serious: Yes (Death)
  Sender: FDA-Public Use
  Company Number: USA-2004-0014968

PATIENT
  Age: 41 Year
  Sex: Female
  Weight: 181.4 kg

DRUGS (1)
  1. OXYCODONE HCL [Suspect]

REACTIONS (9)
  - ACCIDENT [None]
  - ACCIDENTAL OVERDOSE [None]
  - CARDIOMEGALY [None]
  - DRUG TOXICITY [None]
  - HYPERAEMIA [None]
  - SPLENOMEGALY [None]
  - TRACHEAL DISORDER [None]
  - VENTRICULAR ARRHYTHMIA [None]
  - VENTRICULAR HYPERTROPHY [None]
